FAERS Safety Report 9023915 (Version 2)
Quarter: 2013Q1

REPORT INFORMATION
  Report Type: Spontaneous
  Country: US (occurrence: US)
  Receive Date: 20130121
  Receipt Date: 20130212
  Transmission Date: 20140127
  Serious: No
  Sender: FDA-Public Use
  Company Number: US-PFIZER INC-2012073464

PATIENT
  Age: 67 Year
  Sex: Female
  Weight: 48.07 kg

DRUGS (4)
  1. NORVASC [Suspect]
     Indication: HYPERTENSION
     Dosage: 5 MG, 1X/DAY
     Route: 048
  2. NORVASC [Suspect]
     Dosage: 2.5 MG, 1X/DAY
     Route: 048
  3. CARVEDILOL [Concomitant]
     Indication: HYPERTENSION
     Dosage: UNK
  4. CARVEDILOL [Concomitant]
     Indication: CARDIAC DISORDER

REACTIONS (2)
  - Hypotension [Unknown]
  - Blood pressure inadequately controlled [Unknown]
